FAERS Safety Report 16702486 (Version 1)
Quarter: 2019Q3

REPORT INFORMATION
  Report Type: Spontaneous
  Country: US (occurrence: US)
  Receive Date: 20190813
  Receipt Date: 20190813
  Transmission Date: 20191004
  Serious: Yes (Hospitalization)
  Sender: FDA-Public Use
  Company Number: None

PATIENT
  Age: 34 Year
  Sex: Female

DRUGS (12)
  1. OXYCODONE AND ACETAMINOPHEN [Concomitant]
     Active Substance: ACETAMINOPHEN\OXYCODONE HYDROCHLORIDE
  2. DOK [Concomitant]
     Active Substance: DOCUSATE SODIUM
  3. SUCRALFATE. [Concomitant]
     Active Substance: SUCRALFATE
  4. PANTOPRAZOLE [Concomitant]
     Active Substance: PANTOPRAZOLE
  5. TRAMADOL. [Concomitant]
     Active Substance: TRAMADOL
  6. BUDESONIDE. [Concomitant]
     Active Substance: BUDESONIDE
  7. DICYCLOMINE [Concomitant]
     Active Substance: DICYCLOMINE HYDROCHLORIDE
  8. POLYETH GLYC [Concomitant]
     Active Substance: POLYETHYLENE GLYCOLS
  9. FLUCONAZOLE. [Concomitant]
     Active Substance: FLUCONAZOLE
  10. ONDASETRON [Concomitant]
     Active Substance: ONDANSETRON
  11. HUMIRA [Suspect]
     Active Substance: ADALIMUMAB
     Indication: CROHN^S DISEASE
     Dosage: ?          OTHER FREQUENCY:EVERY 2 WEEKS;?
     Route: 058
     Dates: start: 20190619
  12. FAMOTIDINE. [Concomitant]
     Active Substance: FAMOTIDINE

REACTIONS (2)
  - Gastritis [None]
  - Crohn^s disease [None]
